FAERS Safety Report 6248170-7 (Version None)
Quarter: 2009Q2

REPORT INFORMATION
  Report Type: 
  Country: None (occurrence: None)
  Receive Date: 20090624
  Receipt Date: 20090624
  Transmission Date: 20091009
  Serious: Yes (Other)
  Sender: FDA-Public Use
  Company Number: None

PATIENT
  Age: 14 Year
  Sex: Female

DRUGS (1)
  1. MONISTAT 7 COMBINATION PACK [Suspect]
     Indication: FUNGAL INFECTION
     Dosage: 7-DAY USE DAILY-P.M.- VAG
     Route: 067
     Dates: start: 20090604, end: 20090604

REACTIONS (3)
  - ABASIA [None]
  - CRYING [None]
  - VULVOVAGINAL BURNING SENSATION [None]
